FAERS Safety Report 18092542 (Version 1)
Quarter: 2020Q3

REPORT INFORMATION
  Report Type: Spontaneous
  Country: US (occurrence: US)
  Receive Date: 20200730
  Receipt Date: 20200730
  Transmission Date: 20201103
  Serious: No
  Sender: FDA-Public Use
  Company Number: US-PFIZER INC-2020289078

PATIENT
  Age: 46 Year

DRUGS (1)
  1. ARTHROTEC [Suspect]
     Active Substance: DICLOFENAC SODIUM\MISOPROSTOL
     Dosage: (QUANTITY FOR 90 DAYS: 180)

REACTIONS (2)
  - Back pain [Unknown]
  - Pain in extremity [Unknown]
